FAERS Safety Report 10487134 (Version 1)
Quarter: 2014Q3

REPORT INFORMATION
  Report Type: Spontaneous
  Country: US (occurrence: None)
  Receive Date: 20140930
  Receipt Date: 20140930
  Transmission Date: 20150326
  Serious: No
  Sender: FDA-Public Use
  Company Number: None

PATIENT
  Age: 62 Year
  Sex: Male
  Weight: 140.9 kg

DRUGS (4)
  1. DABIGATRAN [Suspect]
     Active Substance: DABIGATRAN
     Indication: CARDIAC OPERATION
     Dates: start: 20140127, end: 20140703
  2. CLOPIDOGREL [Suspect]
     Active Substance: CLOPIDOGREL BISULFATE
     Indication: CORONARY ARTERIAL STENT INSERTION
     Dates: start: 20130419, end: 20140703
  3. DABIGATRAN [Suspect]
     Active Substance: DABIGATRAN
     Indication: VASCULAR OPERATION
     Dates: start: 20140127, end: 20140703
  4. DABIGATRAN [Suspect]
     Active Substance: DABIGATRAN
     Indication: ATRIAL FIBRILLATION
     Dates: start: 20140127, end: 20140703

REACTIONS (3)
  - Rectal haemorrhage [None]
  - Haematochezia [None]
  - Haemorrhage [None]

NARRATIVE: CASE EVENT DATE: 20140528
